FAERS Safety Report 4641960-3 (Version None)
Quarter: 2005Q2

REPORT INFORMATION
  Report Type: 
  Country: None (occurrence: None)
  Receive Date: 20050421
  Receipt Date: 20050407
  Transmission Date: 20051028
  Serious: Yes (Hospitalization, Other)
  Sender: FDA-Public Use
  Company Number: 2005056302

PATIENT
  Age: 68 Year
  Sex: Female
  Weight: 68.0396 kg

DRUGS (4)
  1. BEXTRA [Suspect]
     Indication: ARTHRITIS
     Dosage: 20 MG (20 MG, 1 IN 1 D), ORAL
     Route: 048
     Dates: start: 20030101
  2. DYAZIDE [Concomitant]
  3. ASPIRIN [Concomitant]
  4. VITAMINS (VITAMINS) [Concomitant]

REACTIONS (10)
  - EYE SWELLING [None]
  - FLUID RETENTION [None]
  - MYOCARDIAL INFARCTION [None]
  - PRURITUS [None]
  - RASH PAPULAR [None]
  - SKIN BURNING SENSATION [None]
  - SKIN IRRITATION [None]
  - SWELLING [None]
  - SWELLING FACE [None]
  - WEIGHT FLUCTUATION [None]
